FAERS Safety Report 23359785 (Version 1)
Quarter: 2024Q1

REPORT INFORMATION
  Report Type: Other
  Country: IT (occurrence: IT)
  Receive Date: 20240103
  Receipt Date: 20240103
  Transmission Date: 20240410
  Serious: Yes (Other)
  Sender: FDA-Public Use
  Company Number: None

PATIENT
  Age: 55 Year
  Sex: Male
  Weight: 80 kg

DRUGS (2)
  1. BEVACIZUMAB [Suspect]
     Active Substance: BEVACIZUMAB
     Indication: Astrocytoma
     Dosage: 500 MILLIGRAM, START OF THERAPY 01/21/2022 - THERAPY EVERY 14 DAYS - 19TH CYCLE
     Route: 042
     Dates: start: 20230120, end: 20230120
  2. IRINOTECAN [Suspect]
     Active Substance: IRINOTECAN
     Indication: Astrocytoma
     Dosage: 250 MILLIGRAM, START OF THERAPY 01/21/2022 - 19TH CYCLE - THERAPY EVERY 14 DAYS (LAST CYCLE WITH IRI
     Route: 042
     Dates: start: 20230120, end: 20230523

REACTIONS (3)
  - Azotaemia [Recovering/Resolving]
  - Off label use [Recovering/Resolving]
  - Diarrhoea [Recovered/Resolved]

NARRATIVE: CASE EVENT DATE: 20230101
